FAERS Safety Report 12469342 (Version 1)
Quarter: 2016Q2

REPORT INFORMATION
  Report Type: Spontaneous
  Country: US (occurrence: US)
  Receive Date: 20160615
  Receipt Date: 20160615
  Transmission Date: 20160815
  Serious: No
  Sender: FDA-Public Use
  Company Number: US-TEIKOKU PHARMA USA-TPU2016-00367

PATIENT
  Age: 52 Year
  Sex: Female
  Weight: 63.56 kg

DRUGS (6)
  1. PERCOCET [Suspect]
     Active Substance: ACETAMINOPHEN\OXYCODONE HYDROCHLORIDE
     Dosage: 8THS OF TABLET
     Route: 048
     Dates: start: 201604, end: 201604
  2. PERCOCET [Suspect]
     Active Substance: ACETAMINOPHEN\OXYCODONE HYDROCHLORIDE
     Indication: OCCIPITAL NEURALGIA
     Dosage: 5-325MG
     Route: 048
     Dates: start: 2008, end: 2008
  3. ACETAMINOPHEN\HYDROCODONE BITARTRATE [Suspect]
     Active Substance: ACETAMINOPHEN\HYDROCODONE BITARTRATE
     Indication: PRODUCT USED FOR UNKNOWN INDICATION
  4. PERCOCET [Suspect]
     Active Substance: ACETAMINOPHEN\OXYCODONE HYDROCHLORIDE
     Dosage: QUARTERS OF TABLET
     Route: 048
     Dates: start: 20151229, end: 201604
  5. LIDODERM [Suspect]
     Active Substance: LIDOCAINE
     Indication: OCCIPITAL NEURALGIA
     Dosage: APPLIED PATCH TO LOWER AND UPPER NECK
     Route: 061
     Dates: start: 201309, end: 201512
  6. LIDODERM [Suspect]
     Active Substance: LIDOCAINE
     Indication: POST HERPETIC NEURALGIA

REACTIONS (8)
  - Hypersensitivity [Recovered/Resolved]
  - Neuralgia [Not Recovered/Not Resolved]
  - Pruritus [Recovered/Resolved]
  - Dizziness [Recovered/Resolved]
  - Headache [Recovered/Resolved]
  - Expired product administered [Recovered/Resolved]
  - Balance disorder [Recovered/Resolved]
  - Visual impairment [Recovered/Resolved]

NARRATIVE: CASE EVENT DATE: 201604
